FAERS Safety Report 21843657 (Version 1)
Quarter: 2023Q1

REPORT INFORMATION
  Report Type: Report from Study
  Country: US (occurrence: US)
  Receive Date: 20230110
  Receipt Date: 20230110
  Transmission Date: 20230418
  Serious: Yes (Other)
  Sender: FDA-Public Use
  Company Number: US-PFIZER INC-202200174042

PATIENT
  Age: 72 Year
  Sex: Female
  Weight: 92.51 kg

DRUGS (3)
  1. LYRICA [Suspect]
     Active Substance: PREGABALIN
     Indication: Pain
     Dosage: 75 MILLIGRAM, QID (75 MG, 4X/DAY)
     Route: 048
  2. LYRICA [Suspect]
     Active Substance: PREGABALIN
     Indication: Neuropathy peripheral
     Dosage: 50 MILLIGRAM, PRN (50 MG, AS NEEDED)
     Route: 065
  3. LYRICA [Suspect]
     Active Substance: PREGABALIN
     Indication: Diabetic neuropathy

REACTIONS (8)
  - Deafness [Unknown]
  - Mental impairment [Unknown]
  - Drug dependence [Unknown]
  - Cardiac failure congestive [Recovered/Resolved]
  - Pain in extremity [Unknown]
  - Dry mouth [Recovered/Resolved]
  - Pain [Unknown]
  - Off label use [Unknown]

NARRATIVE: CASE EVENT DATE: 20210104
